FAERS Safety Report 11825953 (Version 1)
Quarter: 2015Q4

REPORT INFORMATION
  Report Type: Spontaneous
  Country: CA (occurrence: CA)
  Receive Date: 20151211
  Receipt Date: 20151211
  Transmission Date: 20160305
  Serious: Yes (Other)
  Sender: FDA-Public Use
  Company Number: CA-TEVA-617200ACC

PATIENT
  Age: 52 Year
  Sex: Male

DRUGS (2)
  1. LAMOTRIGINE. [Suspect]
     Active Substance: LAMOTRIGINE
     Indication: SEIZURE
     Dosage: 2 DOSAGE FORMS DAILY;
     Route: 048
  2. CARBAMAZEPINE CR SANDOZ [Suspect]
     Active Substance: CARBAMAZEPINE
     Indication: SEIZURE
     Dosage: 2 DOSAGE FORMS DAILY;
     Route: 048

REACTIONS (5)
  - Drug ineffective [Unknown]
  - Seizure [Unknown]
  - Thoracostomy [Unknown]
  - Pneumothorax [Unknown]
  - Product substitution issue [Unknown]
